FAERS Safety Report 14246054 (Version 2)
Quarter: 2018Q1

REPORT INFORMATION
  Report Type: Report from Study
  Country: US (occurrence: US)
  Receive Date: 20171204
  Receipt Date: 20180319
  Transmission Date: 20180508
  Serious: Yes (Other)
  Sender: FDA-Public Use
  Company Number: US-ROCHE-2030662

PATIENT
  Age: 67 Year
  Sex: Female
  Weight: 77.18 kg

DRUGS (1)
  1. ACTEMRA [Suspect]
     Active Substance: TOCILIZUMAB
     Indication: RHEUMATOID ARTHRITIS
     Dosage: ONCE WEEKLY INJECTION EVERY WEDNESDAY ;ONGOING: YES
     Route: 058
     Dates: start: 2014

REACTIONS (3)
  - Deafness unilateral [Not Recovered/Not Resolved]
  - Kidney infection [Unknown]
  - Tinnitus [Not Recovered/Not Resolved]

NARRATIVE: CASE EVENT DATE: 20171119
